FAERS Safety Report 17749000 (Version 3)
Quarter: 2020Q3

REPORT INFORMATION
  Report Type: Spontaneous
  Country: US (occurrence: US)
  Receive Date: 20200505
  Receipt Date: 20200904
  Transmission Date: 20201102
  Serious: No
  Sender: FDA-Public Use
  Company Number: US-GILEAD-2020-0462975

PATIENT
  Sex: Female

DRUGS (2)
  1. TRUVADA [Suspect]
     Active Substance: EMTRICITABINE\TENOFOVIR DISOPROXIL FUMARATE
     Indication: HIV INFECTION
     Dosage: UNK
     Route: 048
     Dates: start: 2007, end: 202004
  2. TRUVADA [Suspect]
     Active Substance: EMTRICITABINE\TENOFOVIR DISOPROXIL FUMARATE
     Dosage: UNK
     Route: 048
     Dates: start: 2010, end: 2020

REACTIONS (4)
  - Tooth loss [Not Recovered/Not Resolved]
  - Pain [Not Recovered/Not Resolved]
  - Emotional distress [Not Recovered/Not Resolved]
  - Bone density decreased [Unknown]

NARRATIVE: CASE EVENT DATE: 2011
